FAERS Safety Report 9700636 (Version 1)
Quarter: 2013Q4

REPORT INFORMATION
  Report Type: Spontaneous
  Country: AU (occurrence: AU)
  Receive Date: 20131121
  Receipt Date: 20131121
  Transmission Date: 20140711
  Serious: Yes (Other)
  Sender: FDA-Public Use
  Company Number: PHHY2013AU131180

PATIENT
  Sex: Male

DRUGS (1)
  1. NILOTINIB [Suspect]

REACTIONS (1)
  - Lymphadenopathy [Unknown]
